FAERS Safety Report 10237522 (Version 1)
Quarter: 2014Q2

REPORT INFORMATION
  Report Type: Report from Study
  Country: AT (occurrence: AT)
  Receive Date: 20140616
  Receipt Date: 20140616
  Transmission Date: 20141212
  Serious: Yes (Other)
  Sender: FDA-Public Use
  Company Number: AT-009507513-1406AUT004926

PATIENT
  Sex: 0

DRUGS (3)
  1. RIBAVIRIN [Suspect]
     Indication: HEPATITIS C
     Dosage: UNK
  2. OMBITASVIR [Suspect]
     Indication: HEPATITIS C
     Dosage: 25 MG, UNK
  3. DASABUVIR [Suspect]
     Indication: HEPATITIS C
     Dosage: 250 MG, BID

REACTIONS (1)
  - Pancreatitis [Unknown]
